FAERS Safety Report 13269783 (Version 1)
Quarter: 2017Q1

REPORT INFORMATION
  Report Type: Spontaneous
  Country: US (occurrence: US)
  Receive Date: 20170224
  Receipt Date: 20170224
  Transmission Date: 20170428
  Serious: No
  Sender: FDA-Public Use
  Company Number: US-BRACCO-013599

PATIENT
  Age: 66 Year
  Sex: Male

DRUGS (6)
  1. NIFEDIPINE. [Concomitant]
     Active Substance: NIFEDIPINE
  2. LASIX [Concomitant]
     Active Substance: FUROSEMIDE
     Dates: start: 20160510
  3. METOPROLOL. [Concomitant]
     Active Substance: METOPROLOL
  4. LISINOPRIL. [Concomitant]
     Active Substance: LISINOPRIL
  5. ASPIRIN. [Concomitant]
     Active Substance: ASPIRIN
  6. ISOVUE 370 [Suspect]
     Active Substance: IOPAMIDOL
     Indication: COMPUTERISED TOMOGRAM
     Dosage: ^AUTO INJECT^
     Dates: start: 20160510, end: 20160510

REACTIONS (4)
  - Face oedema [Unknown]
  - Pruritus [Unknown]
  - Product container issue [Unknown]
  - Erythema [Unknown]

NARRATIVE: CASE EVENT DATE: 20160510
